FAERS Safety Report 10942454 (Version 2)
Quarter: 2015Q2

REPORT INFORMATION
  Report Type: Spontaneous
  Country: US (occurrence: US)
  Receive Date: 20150322
  Receipt Date: 20150524
  Transmission Date: 20150821
  Serious: No
  Sender: FDA-Public Use
  Company Number: US-JNJFOC-20140408720

PATIENT
  Age: 51 Year
  Sex: Female

DRUGS (6)
  1. INVOKANA [Suspect]
     Active Substance: CANAGLIFLOZIN
     Indication: TYPE 2 DIABETES MELLITUS
     Route: 048
  2. ZESTRIL [Concomitant]
     Active Substance: LISINOPRIL
  3. MOTRIN [Concomitant]
     Active Substance: IBUPROFEN
  4. ZOCOR [Concomitant]
     Active Substance: SIMVASTATIN
  5. LANTUS [Concomitant]
     Active Substance: INSULIN GLARGINE
  6. CYMBALTA [Concomitant]
     Active Substance: DULOXETINE HYDROCHLORIDE

REACTIONS (1)
  - Rash [Unknown]
